FAERS Safety Report 7957009-0 (Version None)
Quarter: 2011Q4

REPORT INFORMATION
  Report Type: 
  Country: None (occurrence: None)
  Receive Date: 20111205
  Receipt Date: 20111205
  Transmission Date: 20120403
  Serious: Yes (Disabling, Other)
  Sender: FDA-Public Use
  Company Number: None

PATIENT
  Age: 24 Year
  Sex: Female
  Weight: 66.224 kg

DRUGS (1)
  1. MIRENA [Suspect]

REACTIONS (6)
  - SWELLING [None]
  - HYPERTENSION [None]
  - MENORRHAGIA [None]
  - ALOPECIA [None]
  - DYSURIA [None]
  - MIGRAINE [None]
